FAERS Safety Report 10634796 (Version 1)
Quarter: 2014Q4

REPORT INFORMATION
  Report Type: Spontaneous
  Country: IT (occurrence: IT)
  Receive Date: 20141205
  Receipt Date: 20141205
  Transmission Date: 20150529
  Serious: Yes (Other)
  Sender: FDA-Public Use
  Company Number: IT-PFIZER INC-2014331842

PATIENT
  Age: 8 Week
  Sex: Male
  Weight: 3 kg

DRUGS (5)
  1. PEDIAFER /00023503/ [Concomitant]
     Dosage: 4 GTT, DAILY
     Route: 048
  2. DIFLUCAN [Suspect]
     Active Substance: FLUCONAZOLE
     Indication: CANDIDA INFECTION
     Dosage: 21 MG, WEEKLY
     Dates: start: 20130602, end: 20130730
  3. DOBETIN [Concomitant]
     Active Substance: CYANOCOBALAMIN
     Dosage: 10 GTT, UNK
     Route: 048
     Dates: start: 20130615, end: 20130918
  4. TAZIDIF [Suspect]
     Active Substance: CEFTAZIDIME
     Indication: SEPSIS
     Dosage: 270 MG, DAILY
     Route: 042
     Dates: start: 20130724, end: 20130726
  5. DICOFLOR [Concomitant]
     Dosage: 5 GTT, DAILY
     Route: 048

REACTIONS (1)
  - Anaemia [Recovered/Resolved]

NARRATIVE: CASE EVENT DATE: 20130725
